FAERS Safety Report 7496244-5 (Version None)
Quarter: 2011Q2

REPORT INFORMATION
  Report Type: 
  Country: None (occurrence: None)
  Receive Date: 20110523
  Receipt Date: 20110519
  Transmission Date: 20111010
  Serious: Yes (Death)
  Sender: FDA-Public Use
  Company Number: PHHY2011US33994

PATIENT
  Sex: Male

DRUGS (1)
  1. EXELON [Suspect]
     Indication: PARKINSON'S DISEASE
     Dosage: 9.5 MG, DAILY
     Route: 062

REACTIONS (3)
  - CARDIOMYOPATHY [None]
  - PARKINSON'S DISEASE [None]
  - DEMENTIA [None]
